FAERS Safety Report 13159118 (Version 1)
Quarter: 2017Q1

REPORT INFORMATION
  Report Type: Other
  Country: None (occurrence: US)
  Receive Date: 20170127
  Receipt Date: 20170127
  Transmission Date: 20170428
  Serious: Yes (Life-Threatening)
  Sender: FDA-Public Use
  Company Number: US-MEDAC PHARMA, INC.-1062429

PATIENT
  Age: 49 Year
  Sex: Female

DRUGS (6)
  1. BUDESONIDE. [Suspect]
     Active Substance: BUDESONIDE
     Route: 048
  2. METHYLPREDNISONE [Suspect]
     Active Substance: METHYLPREDNISOLONE
  3. METHOTREXATE. [Suspect]
     Active Substance: METHOTREXATE
  4. MYCOPHENOLATE MOFETIL. [Suspect]
     Active Substance: MYCOPHENOLATE MOFETIL
  5. TACROLIMUS. [Suspect]
     Active Substance: TACROLIMUS
  6. SIROLIMUS. [Suspect]
     Active Substance: SIROLIMUS

REACTIONS (1)
  - Drug ineffective [None]
